FAERS Safety Report 9953747 (Version 1)
Quarter: 2014Q1

REPORT INFORMATION
  Report Type: Spontaneous
  Country: US (occurrence: US)
  Receive Date: 20140304
  Receipt Date: 20140304
  Transmission Date: 20141002
  Serious: No
  Sender: FDA-Public Use
  Company Number: US-AMGEN-USASP2013075573

PATIENT
  Age: 51 Year
  Sex: Female
  Weight: 88.44 kg

DRUGS (8)
  1. ENBREL [Suspect]
     Indication: PRODUCT USED FOR UNKNOWN INDICATION
     Dosage: 50 MG, QWK
     Route: 058
  2. DIGOXIN [Concomitant]
     Dosage: 0.125 MG, UNK
  3. PAXIL                              /00500401/ [Concomitant]
     Dosage: 10 MG, UNK
  4. METFORMIN [Concomitant]
     Dosage: 500 MG, UNK
  5. MELOXICAM [Concomitant]
     Dosage: 15 MG, UNK
  6. FOLIC ACID [Concomitant]
     Dosage: UNK
  7. ATENOLOL [Concomitant]
     Dosage: 50 MG, UNK
  8. MULTIVITAMINS, PLAIN [Concomitant]
     Dosage: UNK

REACTIONS (2)
  - Pain [Unknown]
  - Injection site reaction [Unknown]
